FAERS Safety Report 5088338-9 (Version None)
Quarter: 2006Q3

REPORT INFORMATION
  Report Type: 
  Country: None (occurrence: None)
  Receive Date: 20060821
  Receipt Date: 20060808
  Transmission Date: 20061208
  Serious: Yes (Hospitalization)
  Sender: FDA-Public Use
  Company Number: 2006BI011159

PATIENT
  Age: 47 Year
  Sex: Female
  Weight: 93.8946 kg

DRUGS (1)
  1. AVONEX [Suspect]
     Indication: MULTIPLE SCLEROSIS
     Dosage: 30 UG; QW; IM
     Route: 030
     Dates: start: 20050501

REACTIONS (3)
  - CRYSTAL URINE [None]
  - INFLUENZA LIKE ILLNESS [None]
  - UTERINE PROLAPSE [None]
